FAERS Safety Report 4928555-9 (Version None)
Quarter: 2006Q1

REPORT INFORMATION
  Report Type: 
  Country: None (occurrence: None)
  Receive Date: 20060223
  Receipt Date: 20060131
  Transmission Date: 20060701
  Serious: Yes (Other)
  Sender: FDA-Public Use
  Company Number: US200602000205

PATIENT
  Age: 76 Year
  Sex: Female

DRUGS (2)
  1. FORTEO [Suspect]
     Dates: start: 20050601, end: 20051228
  2. FORTEO PEN (250MCG/ML) [Concomitant]

REACTIONS (2)
  - LARYNGITIS [None]
  - PLATELET COUNT DECREASED [None]
